FAERS Safety Report 5714140-8 (Version None)
Quarter: 2008Q2

REPORT INFORMATION
  Report Type: 
  Country: None (occurrence: None)
  Receive Date: 20080423
  Receipt Date: 20080416
  Transmission Date: 20081010
  Serious: Yes (Hospitalization, Other)
  Sender: FDA-Public Use
  Company Number: PHEH2004US09207

PATIENT

DRUGS (12)
  1. ESTRADERM [Suspect]
     Indication: MENOPAUSE
     Dosage: 0.05 MG TWICE WEEKLY
     Route: 062
     Dates: start: 19930820, end: 19970304
  2. MPA [Suspect]
     Indication: MENOPAUSE
     Dosage: UNK, QD ONE TAB
     Route: 048
     Dates: start: 19930809, end: 19970501
  3. PROVERA [Suspect]
     Indication: MENOPAUSE
     Dosage: UNK, QD, ONE TAB
     Route: 048
     Dates: start: 19930809, end: 19970501
  4. PREMARIN [Suspect]
     Indication: MENOPAUSE
     Dosage: 0.625 MG, UNK
     Route: 048
     Dates: start: 19930809, end: 19930820
  5. PREMPHASE 14/14 [Suspect]
     Indication: MENOPAUSE
     Dosage: .625/5 MG/DAY
     Route: 048
     Dates: start: 19960412, end: 19990310
  6. ESTRATEST [Suspect]
     Indication: MENOPAUSE
     Dosage: UNK, QHS TAB
     Route: 048
     Dates: start: 19970416, end: 19970501
  7. PREMPRO [Suspect]
     Indication: MENOPAUSE
     Dosage: 0.625 MG, UNK
     Route: 048
     Dates: start: 19930101, end: 19990709
  8. PROZAC [Concomitant]
     Indication: DEPRESSION
     Dosage: UNK, QD
     Route: 048
     Dates: start: 19890101
  9. VALIUM [Concomitant]
     Indication: ANXIETY
     Dosage: DAILY PRN
     Route: 048
  10. PREMARIN [Suspect]
     Indication: VULVOVAGINAL DRYNESS
     Dosage: 0.6 UNK, UNK
     Route: 061
     Dates: start: 20000407, end: 20030304
  11. EVISTA [Concomitant]
  12. CONTRACEPTIVES NOS [Concomitant]
     Indication: CONTRACEPTION

REACTIONS (35)
  - ABDOMINAL PAIN [None]
  - ACCIDENT [None]
  - AMENORRHOEA [None]
  - ANAEMIA [None]
  - BREAST CALCIFICATIONS [None]
  - BREAST CANCER [None]
  - BREAST COSMETIC SURGERY [None]
  - BREAST CYST [None]
  - BREAST MASS [None]
  - COLONIC POLYP [None]
  - DEPRESSION SUICIDAL [None]
  - DYSMENORRHOEA [None]
  - DYSPAREUNIA [None]
  - DYSTONIA [None]
  - ENDOMETRIAL HYPERTROPHY [None]
  - EXOSTOSIS [None]
  - FIBROCYSTIC BREAST DISEASE [None]
  - HAEMANGIOMA OF LIVER [None]
  - HAEMORRHOIDS [None]
  - INJURY [None]
  - INTERVERTEBRAL DISC PROTRUSION [None]
  - LIGAMENT OPERATION [None]
  - LIGAMENT RUPTURE [None]
  - MODIFIED RADICAL MASTECTOMY [None]
  - NECK PAIN [None]
  - PAIN [None]
  - POSTMENOPAUSAL HAEMORRHAGE [None]
  - RADICULOPATHY [None]
  - RADIOTHERAPY [None]
  - RECTAL HAEMORRHAGE [None]
  - SPINAL CORD COMPRESSION [None]
  - SPINAL OSTEOARTHRITIS [None]
  - SUICIDE ATTEMPT [None]
  - UTERINE LEIOMYOMA [None]
  - VULVOVAGINAL DRYNESS [None]
